FAERS Safety Report 13346305 (Version 1)
Quarter: 2017Q1

REPORT INFORMATION
  Report Type: Spontaneous
  Country: US (occurrence: US)
  Receive Date: 20170317
  Receipt Date: 20170317
  Transmission Date: 20170428
  Serious: No
  Sender: FDA-Public Use
  Company Number: US-MYLANLABS-2017M1010856

PATIENT
  Age: 70 Year
  Sex: Female
  Weight: 76.64 kg

DRUGS (1)
  1. GLIPIZIDE EXTENDED-RELEASE TABLETS [Suspect]
     Active Substance: GLIPIZIDE
     Indication: DIABETES MELLITUS
     Dosage: 5 MG, QD, IN THE MORNING
     Route: 048
     Dates: start: 201701

REACTIONS (1)
  - Diarrhoea [Not Recovered/Not Resolved]

NARRATIVE: CASE EVENT DATE: 201701
